FAERS Safety Report 8721120 (Version 4)
Quarter: 2013Q2

REPORT INFORMATION
  Report Type: Report from Study
  Country: IN (occurrence: IN)
  Receive Date: 20120813
  Receipt Date: 20130416
  Transmission Date: 20140414
  Serious: Yes (Other)
  Sender: FDA-Public Use
  Company Number: IN-009507513-1208IND003389

PATIENT
  Age: 70 Year
  Sex: Female
  Weight: 50 kg

DRUGS (7)
  1. EZETIMIBE (+) SIMVASTATIN [Suspect]
     Indication: ACUTE CORONARY SYNDROME
     Dosage: 10-40 MG, QD
     Route: 048
     Dates: start: 20100317
  2. GLYCOMET [Concomitant]
     Dosage: UNK UNK, BID
     Route: 048
     Dates: start: 20100313
  3. MET XL TABLETS [Concomitant]
     Dosage: UNK UNK,
     Route: 048
     Dates: start: 20110711
  4. MECOBALAMIN [Concomitant]
     Dosage: QD
     Route: 048
     Dates: start: 20120515
  5. CLOPIDOGREL [Concomitant]
     Dosage: 75 MG, QD
     Route: 048
     Dates: start: 20120327
  6. PANTOP D [Concomitant]
     Dosage: UNK UNK, BID
     Route: 048
     Dates: start: 20120515
  7. NATURES BENEFIT DIABETIC MULTIVITAMIN [Concomitant]
     Dosage: UNK, ONCE
     Route: 048
     Dates: start: 20120515

REACTIONS (6)
  - Breast cancer [Unknown]
  - Red blood cell count decreased [None]
  - Haemoglobin decreased [None]
  - Blood glucose increased [None]
  - Haematocrit decreased [None]
  - Blood urea increased [None]
